FAERS Safety Report 9435015 (Version 1)
Quarter: 2013Q3

REPORT INFORMATION
  Report Type: Report from Study
  Country: DE (occurrence: DE)
  Receive Date: 20130801
  Receipt Date: 20130801
  Transmission Date: 20140515
  Serious: Yes (Life-Threatening, Hospitalization)
  Sender: FDA-Public Use
  Company Number: DE-CELGENEUS-062-21880-13054019

PATIENT
  Age: 62 Year
  Sex: Male
  Weight: 124 kg

DRUGS (9)
  1. REVLIMID [Suspect]
     Indication: PLASMA CELL MYELOMA
     Dosage: 15 MILLIGRAM
     Route: 048
     Dates: start: 20130121
  2. REVLIMID [Suspect]
     Dosage: 15 MILLIGRAM
     Route: 048
     Dates: end: 20130628
  3. PIOGLITAZONE [Suspect]
     Indication: PLASMA CELL MYELOMA
     Dosage: 60 MILLIGRAM
     Route: 048
     Dates: start: 20130121
  4. PIOGLITAZONE [Suspect]
     Dosage: 60 MILLIGRAM
     Route: 048
     Dates: end: 20130628
  5. DEXAMETHASONE [Suspect]
     Indication: PLASMA CELL MYELOMA
     Dosage: DAY 1 AND 15
     Route: 048
     Dates: start: 20130121
  6. DEXAMETHASONE [Suspect]
     Dosage: 20MG (D1+15), 1MG (OTHER DAYS)
     Route: 048
     Dates: end: 201305
  7. DEXAMETHASONE [Suspect]
     Dosage: 20MG (D1+15), 1MG (OTHER DAYS)
     Route: 048
     Dates: end: 20130628
  8. TREOSULFAN [Suspect]
     Indication: PLASMA CELL MYELOMA
     Dosage: 500 MILLIGRAM
     Route: 048
     Dates: start: 20130121
  9. TREOSULFAN [Suspect]
     Dosage: 500 MILLIGRAM
     Route: 048
     Dates: end: 20130628

REACTIONS (1)
  - Renal failure acute [Recovered/Resolved with Sequelae]
